FAERS Safety Report 5709439-5 (Version None)
Quarter: 2008Q2

REPORT INFORMATION
  Report Type: 
  Country: None (occurrence: None)
  Receive Date: 20080417
  Receipt Date: 20080417
  Transmission Date: 20081010
  Serious: Yes (Hospitalization)
  Sender: FDA-Public Use
  Company Number: None

PATIENT
  Sex: Male
  Weight: 63 kg

DRUGS (4)
  1. EXJADE [Suspect]
     Indication: PORPHYRIA NON-ACUTE
     Dosage: 250MG QD PO
     Route: 048
     Dates: start: 20080310
  2. FUROSEMIDE [Concomitant]
  3. LISINOPRIL [Concomitant]
  4. LORCET-HD [Concomitant]

REACTIONS (1)
  - SPINAL OSTEOARTHRITIS [None]
